FAERS Safety Report 17579092 (Version 1)
Quarter: 2020Q1

REPORT INFORMATION
  Report Type: Report from Study
  Country: DE (occurrence: DE)
  Receive Date: 20200325
  Receipt Date: 20200325
  Transmission Date: 20200409
  Serious: Yes (Hospitalization, Other)
  Sender: FDA-Public Use
  Company Number: DE-TEVA-2020-DE-1207939

PATIENT
  Age: 61 Year
  Sex: Female
  Weight: 86 kg

DRUGS (8)
  1. CARBOPLATIN. [Suspect]
     Active Substance: CARBOPLATIN
     Indication: OVARIAN EPITHELIAL CANCER
     Dosage: UNK 1ST CYCLE(S)
     Route: 042
  2. CAELYX (LIPOSOMAL DOXORUBICIN) [Suspect]
     Active Substance: DOXORUBICIN HYDROCHLORIDE
     Dosage: UNK 2ND CYCLE(S)
     Route: 042
     Dates: start: 20040518, end: 20040518
  3. METOCLOPRAMIDE. [Concomitant]
     Active Substance: METOCLOPRAMIDE
     Indication: NAUSEA
     Dosage: PRN
     Route: 048
  4. NAVOBAN [Concomitant]
     Active Substance: TROPISETRON HYDROCHLORIDE
     Indication: NAUSEA
     Dosage: 5 MG BID  CYCLE(S)
     Route: 048
  5. CARBOPLATIN. [Suspect]
     Active Substance: CARBOPLATIN
     Dosage: UNK 2ND CYCLE(S)
     Route: 042
     Dates: start: 20040518, end: 20040518
  6. CAELYX (LIPOSOMAL DOXORUBICIN) [Suspect]
     Active Substance: DOXORUBICIN HYDROCHLORIDE
     Dosage: UNK  CONTINUING
     Route: 042
     Dates: end: 20040518
  7. CARBOPLATIN. [Suspect]
     Active Substance: CARBOPLATIN
     Dosage: UNK CONTINUING
     Route: 042
     Dates: end: 20040518
  8. CAELYX (LIPOSOMAL DOXORUBICIN) [Suspect]
     Active Substance: DOXORUBICIN HYDROCHLORIDE
     Indication: OVARIAN EPITHELIAL CANCER
     Dosage: UNK 1ST CYCLE(S)
     Route: 042

REACTIONS (1)
  - Deep vein thrombosis [Recovered/Resolved]

NARRATIVE: CASE EVENT DATE: 20040402
